FAERS Safety Report 20732140 (Version 2)
Quarter: 2022Q3

REPORT INFORMATION
  Report Type: Spontaneous
  Country: US (occurrence: US)
  Receive Date: 20220420
  Receipt Date: 20220701
  Transmission Date: 20221027
  Serious: Yes (Other)
  Sender: FDA-Public Use
  Company Number: US-BRISTOL-MYERS SQUIBB COMPANY-2022-024296

PATIENT
  Age: 77 Year
  Sex: Female

DRUGS (2)
  1. REVLIMID [Suspect]
     Active Substance: LENALIDOMIDE
     Indication: Product used for unknown indication
     Dosage: DAILY ON DAYS 1-21, THEN REST FOR 7 DAYS, REPEAT EVERY 28 DAYS.
     Route: 048
     Dates: start: 20220117
  2. REVLIMID [Suspect]
     Active Substance: LENALIDOMIDE
     Dosage: DAILY ON DAYS 1-21, THEN REST FOR 7 DAYS, REPEAT EVERY 28 DAYS.
     Route: 048

REACTIONS (1)
  - Thrombosis [Recovered/Resolved]
